FAERS Safety Report 16056282 (Version 1)
Quarter: 2019Q2

REPORT INFORMATION
  Report Type: Spontaneous
  Country: US (occurrence: US)
  Receive Date: 20190308
  Receipt Date: 20190308
  Transmission Date: 20190711
  Serious: Yes (Other)
  Sender: FDA-Public Use
  Company Number: None

PATIENT
  Age: 26 Year
  Sex: Female
  Weight: 78.75 kg

DRUGS (3)
  1. ACETAZOLAMIDE 500MG [Concomitant]
     Dates: start: 20180307
  2. AIMOVIG [Suspect]
     Active Substance: ERENUMAB-AOOE
     Indication: MIGRAINE PROPHYLAXIS
     Dosage: ?          OTHER FREQUENCY:ONCE MONTHLY;?
     Route: 058
     Dates: start: 20181113
  3. SYNTHROID [Concomitant]
     Active Substance: LEVOTHYROXINE SODIUM
     Dates: start: 20180712

REACTIONS (3)
  - Chest pain [None]
  - Palpitations [None]
  - Cardiac flutter [None]

NARRATIVE: CASE EVENT DATE: 20190101
